FAERS Safety Report 9208059 (Version 2)
Quarter: 2013Q2

REPORT INFORMATION
  Report Type: Spontaneous
  Country: VE (occurrence: VE)
  Receive Date: 20130403
  Receipt Date: 20130417
  Transmission Date: 20140414
  Serious: Yes (Death, Other)
  Sender: FDA-Public Use
  Company Number: VE-PFIZER INC-2013106924

PATIENT
  Age: 69 Year
  Sex: Male

DRUGS (1)
  1. LIPITOR [Suspect]
     Dosage: UNK, 1X/DAY
     Route: 048

REACTIONS (3)
  - Myocardial infarction [Fatal]
  - Pulmonary haemorrhage [Fatal]
  - Myocardial infarction [Recovered/Resolved]
